FAERS Safety Report 18012941 (Version 1)
Quarter: 2020Q3

REPORT INFORMATION
  Report Type: Spontaneous
  Country: US (occurrence: US)
  Receive Date: 20200710
  Receipt Date: 20200710
  Transmission Date: 20201103
  Serious: Yes (Death)
  Sender: FDA-Public Use
  Company Number: None

PATIENT
  Age: 39 Year
  Sex: Female

DRUGS (4)
  1. CIPROFLOXACN [Suspect]
     Active Substance: CIPROFLOXACIN
  2. PREDNISONE. [Suspect]
     Active Substance: PREDNISONE
  3. AFINITOR [Suspect]
     Active Substance: EVEROLIMUS
     Indication: DRUG THERAPY
     Route: 048
     Dates: start: 20200614, end: 20200708
  4. BENZONATATE. [Suspect]
     Active Substance: BENZONATATE

REACTIONS (1)
  - Death [None]

NARRATIVE: CASE EVENT DATE: 20200708
